FAERS Safety Report 8836104 (Version 3)
Quarter: 2012Q4

REPORT INFORMATION
  Report Type: 
  Country: US (occurrence: US)
  Receive Date: 20121011
  Receipt Date: 20121217
  Transmission Date: 20130627
  Serious: Yes (Other)
  Sender: FDA-Public Use
  Company Number: US-JNJFOC-20121002790

PATIENT
  Age: 57 Year
  Sex: Female
  Weight: 93.85 kg

DRUGS (6)
  1. REMICADE [Suspect]
     Indication: COLITIS ULCERATIVE
     Dosage: at 0, 2, 6 weeks and then 8 weeks thereafter
     Route: 042
     Dates: start: 20120918
  2. TYLENOL [Suspect]
     Route: 065
  3. TYLENOL [Suspect]
     Indication: PREMEDICATION
     Route: 065
  4. CLARITIN [Concomitant]
     Indication: PREMEDICATION
     Route: 065
  5. PREDNISONE [Concomitant]
     Route: 065
  6. ENTOCORT [Concomitant]
     Route: 065

REACTIONS (2)
  - Rash pruritic [Recovering/Resolving]
  - Oedema peripheral [Recovering/Resolving]
